FAERS Safety Report 7903099-0 (Version None)
Quarter: 2011Q4

REPORT INFORMATION
  Report Type: 
  Country: None (occurrence: None)
  Receive Date: 20111104
  Receipt Date: 20111027
  Transmission Date: 20120403
  Serious: Yes (Other)
  Sender: FDA-Public Use
  Company Number: 2011SP044984

PATIENT
  Age: 22 Year
  Sex: Female
  Weight: 56.3368 kg

DRUGS (4)
  1. IMPLANON [Suspect]
     Indication: CONTRACEPTION
     Dosage: SBDE
     Route: 059
     Dates: start: 20091204, end: 20110913
  2. KLONOPIN [Concomitant]
  3. CELEXA [Concomitant]
  4. ALBUTEROL [Concomitant]

REACTIONS (7)
  - MATERNAL EXPOSURE DURING PREGNANCY [None]
  - PREGNANCY TEST POSITIVE [None]
  - HAEMORRHAGE [None]
  - VOMITING [None]
  - ABORTION SPONTANEOUS [None]
  - NAUSEA [None]
  - AMENORRHOEA [None]
